FAERS Safety Report 7917790-3 (Version None)
Quarter: 2011Q4

REPORT INFORMATION
  Report Type: 
  Country: None (occurrence: None)
  Receive Date: 20111116
  Receipt Date: 20111108
  Transmission Date: 20120403
  Serious: Yes (Other)
  Sender: FDA-Public Use
  Company Number: JP-JNJFOC-20111012825

PATIENT
  Age: 83 Year
  Sex: Female

DRUGS (8)
  1. LEVOFLOXACIN [Concomitant]
     Route: 065
  2. CYCLOSPORINE [Concomitant]
     Route: 065
  3. ALDACTONE [Concomitant]
     Route: 048
  4. THYMOGLOBULIN [Suspect]
     Indication: PRODUCT USED FOR UNKNOWN INDICATION
     Route: 041
  5. MAXIPIME [Concomitant]
     Route: 041
  6. NEORAL [Suspect]
     Indication: PRODUCT USED FOR UNKNOWN INDICATION
     Route: 048
  7. PREDNISOLONE [Concomitant]
     Route: 065
  8. ITRACONAZOLE [Suspect]
     Indication: PROPHYLAXIS
     Route: 048
     Dates: start: 20111018

REACTIONS (1)
  - CHOLESTASIS [None]
